FAERS Safety Report 14005494 (Version 1)
Quarter: 2017Q3

REPORT INFORMATION
  Report Type: Other
  Country: US (occurrence: US)
  Receive Date: 20170923
  Receipt Date: 20170923
  Transmission Date: 20171128
  Serious: No
  Sender: FDA-Public Use
  Company Number: US-APOTEX-2017AP014993

PATIENT
  Age: 39 Year
  Sex: Female

DRUGS (2)
  1. CLARISPRAY NASAL ALLERGY [Suspect]
     Active Substance: FLUTICASONE PROPIONATE
     Indication: SNEEZING
     Route: 045
  2. CLARISPRAY NASAL ALLERGY [Suspect]
     Active Substance: FLUTICASONE PROPIONATE
     Indication: HEADACHE

REACTIONS (3)
  - Drug effect delayed [Unknown]
  - Drug effect incomplete [Unknown]
  - Somnolence [Unknown]
